FAERS Safety Report 15613376 (Version 1)
Quarter: 2018Q4

REPORT INFORMATION
  Report Type: Spontaneous
  Country: IT (occurrence: IT)
  Receive Date: 20181113
  Receipt Date: 20181113
  Transmission Date: 20190205
  Serious: Yes (Other)
  Sender: FDA-Public Use
  Company Number: IT-PFIZER INC-2018462050

PATIENT
  Age: 57 Year
  Sex: Female

DRUGS (12)
  1. LEVOPRAID [LEVOSULPIRIDE] [Concomitant]
  2. TRESIBA [Concomitant]
     Active Substance: INSULIN DEGLUDEC
  3. NOVORAPID [Concomitant]
     Active Substance: INSULIN ASPART
  4. METFORMIN [Concomitant]
     Active Substance: METFORMIN HYDROCHLORIDE
  5. GLUCOPHAGE [Concomitant]
     Active Substance: METFORMIN HYDROCHLORIDE
  6. DIBASE [Concomitant]
     Active Substance: CHOLECALCIFEROL
  7. PARACETAMOL [Concomitant]
     Active Substance: ACETAMINOPHEN
  8. AZOPT [Concomitant]
     Active Substance: BRINZOLAMIDE
  9. IBRANCE [Suspect]
     Active Substance: PALBOCICLIB
     Indication: BREAST CANCER
     Dosage: 125 MG, 1X/DAY
     Route: 048
     Dates: start: 20171103, end: 20180621
  10. FASLODEX [Concomitant]
     Active Substance: FULVESTRANT
     Dates: start: 20171019, end: 20180607
  11. LANSOPRAZOLE. [Concomitant]
     Active Substance: LANSOPRAZOLE
  12. ACIDO ZOLEDRONICO MYLAN [Concomitant]

REACTIONS (5)
  - Mucosal inflammation [Recovered/Resolved]
  - Hypertransaminasaemia [Recovered/Resolved]
  - Neutropenia [Recovered/Resolved]
  - Thrombocytopenia [Recovered/Resolved]
  - Diarrhoea [Recovered/Resolved]

NARRATIVE: CASE EVENT DATE: 20171116
